FAERS Safety Report 6613644-3 (Version None)
Quarter: 2010Q1

REPORT INFORMATION
  Report Type: 
  Country: None (occurrence: None)
  Receive Date: 20100224
  Receipt Date: 20090123
  Transmission Date: 20100710
  Serious: Yes (Hospitalization)
  Sender: FDA-Public Use
  Company Number: WAES 0902USA00097

PATIENT
  Age: 78 Year
  Sex: Female
  Weight: 102.9665 kg

DRUGS (2)
  1. ZOCOR [Suspect]
     Indication: LIPIDS
     Dosage: 40 MG/DAILY/PO
     Route: 048
     Dates: start: 20080226, end: 20080315
  2. METFORMIN HCL [Suspect]
     Dosage: 500 MG/BID/UNK
     Dates: start: 20080226, end: 20080310

REACTIONS (5)
  - ABDOMINAL TENDERNESS [None]
  - DIARRHOEA [None]
  - NAUSEA [None]
  - RETCHING [None]
  - VOMITING [None]
